FAERS Safety Report 8493382-5 (Version None)
Quarter: 2012Q3

REPORT INFORMATION
  Report Type: 
  Country: None (occurrence: None)
  Receive Date: 20120706
  Receipt Date: 20120622
  Transmission Date: 20120928
  Serious: No
  Sender: FDA-Public Use
  Company Number: US-ASTRAZENECA-2012SE42153

PATIENT
  Age: 53 Year
  Sex: Female
  Weight: 74.8 kg

DRUGS (3)
  1. TEGRETOL [Concomitant]
     Indication: CONVULSION
  2. RHINOCORT [Suspect]
     Route: 045
  3. RHINOCORT [Suspect]
     Indication: RHINITIS ALLERGIC
     Route: 045

REACTIONS (4)
  - HEADACHE [None]
  - FACIAL PAIN [None]
  - RHINALGIA [None]
  - DIZZINESS [None]
